FAERS Safety Report 22061267 (Version 2)
Quarter: 2023Q2

REPORT INFORMATION
  Report Type: Other
  Country: DK (occurrence: DK)
  Receive Date: 20230303
  Receipt Date: 20230511
  Transmission Date: 20230722
  Serious: Yes (Other)
  Sender: FDA-Public Use
  Company Number: DK-CELLTRION INC.-2023DK004136

PATIENT

DRUGS (2)
  1. INFLIXIMAB [Suspect]
     Active Substance: INFLIXIMAB
     Indication: Rheumatoid arthritis
     Dosage: 300 MG, (6 WEEK, STRENGTH: 100 MG)
     Route: 042
     Dates: start: 20210521, end: 20211006
  2. INFLIXIMAB [Suspect]
     Active Substance: INFLIXIMAB
     Indication: Rheumatoid arthritis
     Dosage: 300 MG, (6 WEEK, STRENGTH: 100 MG)
     Route: 042
     Dates: start: 20210216, end: 20210507

REACTIONS (3)
  - Rheumatoid arthritis [Recovered/Resolved]
  - Product substitution issue [Unknown]
  - Intentional product use issue [Unknown]
